FAERS Safety Report 8768190 (Version 2)
Quarter: 2012Q4

REPORT INFORMATION
  Report Type: Report from Study
  Country: US (occurrence: US)
  Receive Date: 20120906
  Receipt Date: 20120911
  Transmission Date: 20130627
  Serious: Yes (Hospitalization)
  Sender: FDA-Public Use
  Company Number: US-JNJFOC-20120900767

PATIENT
  Age: 14 Year
  Sex: Male
  Weight: 65.5 kg

DRUGS (8)
  1. INFLIXIMAB, RECOMBINANT [Suspect]
     Indication: INFLAMMATORY BOWEL DISEASE
     Route: 042
     Dates: start: 20101217
  2. INFLIXIMAB, RECOMBINANT [Suspect]
     Indication: INFLAMMATORY BOWEL DISEASE
     Route: 042
     Dates: start: 20101102
  3. MULTIVITAMINS [Concomitant]
  4. VANCOMYCIN [Concomitant]
  5. HEPARIN FLUSH [Concomitant]
  6. CETIRIZINE [Concomitant]
  7. FAT EMULSION 20% [Concomitant]
     Route: 050
  8. ONDANSETRON [Concomitant]

REACTIONS (1)
  - Jejunal stenosis [Recovered/Resolved]
